FAERS Safety Report 24965273 (Version 1)
Quarter: 2025Q1

REPORT INFORMATION
  Report Type: Report from Study
  Country: US (occurrence: US)
  Receive Date: 20250213
  Receipt Date: 20250213
  Transmission Date: 20250409
  Serious: Yes (Hospitalization)
  Sender: REGENERON
  Company Number: US-REGENERON PHARMACEUTICALS, INC.-2024-108337

PATIENT
  Sex: Female

DRUGS (1)
  1. EVINACUMAB [Suspect]
     Active Substance: EVINACUMAB
     Indication: Product used for unknown indication
     Route: 042
     Dates: start: 20240802

REACTIONS (6)
  - Fatigue [Unknown]
  - Neck pain [Not Recovered/Not Resolved]
  - Arthralgia [Not Recovered/Not Resolved]
  - Pruritus [Recovered/Resolved]
  - Sneezing [Not Recovered/Not Resolved]
  - Pain [Not Recovered/Not Resolved]

NARRATIVE: CASE EVENT DATE: 20240802
